FAERS Safety Report 8935206 (Version 1)
Quarter: 2012Q4

REPORT INFORMATION
  Report Type: 
  Country: US (occurrence: US)
  Receive Date: 20121129
  Receipt Date: 20121129
  Transmission Date: 20130627
  Serious: No
  Sender: FDA-Public Use
  Company Number: US-BAYER-2012-125488

PATIENT
  Age: 26 Year
  Sex: Male

DRUGS (1)
  1. MAGNEVIST [Suspect]
     Indication: MRI
     Dosage: 30 ml, ONCE
     Dates: start: 20121128, end: 20121128

REACTIONS (4)
  - Nausea [Recovered/Resolved]
  - Erythema [Recovered/Resolved]
  - Pruritus [Recovered/Resolved]
  - Sinus congestion [Recovered/Resolved]
